FAERS Safety Report 5381467-1 (Version None)
Quarter: 2007Q3

REPORT INFORMATION
  Report Type: 
  Country: None (occurrence: None)
  Receive Date: 20070709
  Receipt Date: 20070704
  Transmission Date: 20080115
  Serious: Yes (Hospitalization)
  Sender: FDA-Public Use
  Company Number: PT-BRISTOL-MYERS SQUIBB COMPANY-13834627

PATIENT
  Sex: Male

DRUGS (4)
  1. ATAZANAVIR SULFATE [Suspect]
  2. RITONAVIR [Suspect]
  3. TENOFOVIR [Suspect]
  4. EMTRICITABINE [Concomitant]

REACTIONS (2)
  - RENAL COLIC [None]
  - URETERIC OBSTRUCTION [None]
